FAERS Safety Report 9343605 (Version 4)
Quarter: 2013Q4

REPORT INFORMATION
  Report Type: Spontaneous
  Country: GB (occurrence: None)
  Receive Date: 20130610
  Receipt Date: 20131028
  Transmission Date: 20140711
  Serious: Yes (Other)
  Sender: FDA-Public Use
  Company Number: AUR-APL-2013-04723

PATIENT
  Age: 37 Year
  Sex: Female
  Weight: 53.52 kg

DRUGS (2)
  1. MIRTAZAPINE [Suspect]
     Indication: DEPRESSION
     Dosage: 1 IN 1 D
     Route: 048
     Dates: start: 20130508
  2. VENLAFAXINE (VENLAFAXINE) [Concomitant]

REACTIONS (16)
  - Feeling abnormal [None]
  - Feeling abnormal [None]
  - Dyskinesia [None]
  - Hypoaesthesia [None]
  - Activities of daily living impaired [None]
  - Dyspraxia [None]
  - Feeling cold [None]
  - Impaired driving ability [None]
  - Feeling abnormal [None]
  - Dreamy state [None]
  - Coordination abnormal [None]
  - Feeling drunk [None]
  - Dysgraphia [None]
  - Tremor [None]
  - Tremor [None]
  - Sedation [None]
